FAERS Safety Report 9433910 (Version 1)
Quarter: 2013Q3

REPORT INFORMATION
  Report Type: Spontaneous
  Country: GB (occurrence: GB)
  Receive Date: 20130801
  Receipt Date: 20130801
  Transmission Date: 20140515
  Serious: Yes (Disabling, Other)
  Sender: FDA-Public Use
  Company Number: PHHY2013GB079200

PATIENT
  Age: 59 Year
  Sex: Male
  Weight: 145 kg

DRUGS (3)
  1. METHOTREXATE [Suspect]
     Indication: PSORIASIS
     Dosage: 5 MG, UNK
     Route: 048
     Dates: start: 201107, end: 201108
  2. CELECOXIB [Concomitant]
     Indication: PAIN
     Dosage: 200 MG, UNK
     Route: 048
     Dates: start: 2003, end: 201202
  3. DOVONEX [Concomitant]
     Route: 061
     Dates: start: 2000

REACTIONS (2)
  - Immobile [Recovering/Resolving]
  - Pain in extremity [Recovering/Resolving]
